FAERS Safety Report 6873734-7 (Version None)
Quarter: 2010Q3

REPORT INFORMATION
  Report Type: 
  Country: None (occurrence: None)
  Receive Date: 20100723
  Receipt Date: 20090218
  Transmission Date: 20110219
  Serious: Yes (Other)
  Sender: FDA-Public Use
  Company Number: US-PFIZER INC-2009173175

PATIENT
  Sex: Male
  Weight: 95.707 kg

DRUGS (1)
  1. CHANTIX [Suspect]
     Route: 048
     Dates: start: 20090202, end: 20090217

REACTIONS (5)
  - ABDOMINAL DISCOMFORT [None]
  - DIZZINESS [None]
  - IMPAIRED WORK ABILITY [None]
  - LOSS OF CONSCIOUSNESS [None]
  - VERTIGO [None]
